FAERS Safety Report 12215426 (Version 1)
Quarter: 2016Q1

REPORT INFORMATION
  Report Type: Spontaneous
  Country: US (occurrence: US)
  Receive Date: 20160328
  Receipt Date: 20160328
  Transmission Date: 20160526
  Serious: Yes (Other)
  Sender: FDA-Public Use
  Company Number: US-TEVA-646107USA

PATIENT
  Age: 45 Year
  Sex: Male

DRUGS (2)
  1. HEPARIN [Concomitant]
     Active Substance: HEPARIN SODIUM
     Indication: VENOUS THROMBOSIS
     Route: 042
  2. ENOXAPARIN [Suspect]
     Active Substance: ENOXAPARIN
     Indication: VENOUS THROMBOSIS
     Route: 058

REACTIONS (1)
  - Liver injury [Recovered/Resolved]
